FAERS Safety Report 8690854 (Version 3)
Quarter: 2012Q4

REPORT INFORMATION
  Report Type: 
  Country: US (occurrence: US)
  Receive Date: 20120730
  Receipt Date: 20121004
  Transmission Date: 20130627
  Serious: Yes (Death)
  Sender: FDA-Public Use
  Company Number: US-MSD-1207USA009631

PATIENT
  Age: 72 Year
  Sex: Female

DRUGS (1)
  1. JANUVIA [Suspect]
     Dosage: 1 DF, qd
     Route: 048

REACTIONS (14)
  - Pancreatic carcinoma [Fatal]
  - Diarrhoea [Fatal]
  - Influenza [Fatal]
  - Nausea [Fatal]
  - Vomiting [Fatal]
  - Jaundice [Fatal]
  - Back pain [Fatal]
  - Renal failure acute [Fatal]
  - Pancreatitis chronic [Fatal]
  - Carcinoembryonic antigen increased [Fatal]
  - Gastrointestinal haemorrhage [Fatal]
  - Small intestine carcinoma [Fatal]
  - Abdominal pain upper [Fatal]
  - Decreased appetite [Fatal]
